FAERS Safety Report 25903566 (Version 1)
Quarter: 2025Q4

REPORT INFORMATION
  Report Type: Spontaneous
  Country: EU (occurrence: EU)
  Receive Date: 20251010
  Receipt Date: 20251010
  Transmission Date: 20260118
  Serious: Yes (Hospitalization, Other)
  Sender: BAXTER
  Company Number: None

PATIENT
  Age: 20 Year
  Sex: Female
  Weight: 20 kg

DRUGS (10)
  1. IFOSFAMIDE [Suspect]
     Active Substance: IFOSFAMIDE
     Indication: Rhabdomyosarcoma
     Dosage: 9.2 G, QD
     Route: 042
     Dates: start: 20240313, end: 20240314
  2. BACTRIM [Suspect]
     Active Substance: SULFAMETHOXAZOLE\TRIMETHOPRIM
     Indication: Opportunistic infection prophylaxis
     Dosage: 3 DOSAGE FORM, 1X A WEEK
     Route: 048
  3. DOXORUBICIN [Suspect]
     Active Substance: DOXORUBICIN
     Indication: Rhabdomyosarcoma
     Dosage: 92 MG
     Route: 042
     Dates: start: 20240313, end: 20240314
  4. ACETAMINOPHEN [Suspect]
     Active Substance: ACETAMINOPHEN
     Indication: Pain
     Dosage: 1 G, TID (8 HOURS)
     Route: 048
  5. ONDANSETRON [Suspect]
     Active Substance: ONDANSETRON
     Indication: Prophylaxis of nausea and vomiting
     Dosage: 3 DOSAGE FORM
     Route: 048
  6. VOGALENE [Suspect]
     Active Substance: METOPIMAZINE
     Indication: Prophylaxis of nausea and vomiting
     Dosage: 2 DOSAGE FORM
     Route: 048
  7. LENOGRASTIM [Suspect]
     Active Substance: LENOGRASTIM
     Indication: Colony stimulating factor therapy
     Dosage: 34 MILLION INTERNATIONAL UNIT, QD
     Route: 058
  8. COSMEGEN [Suspect]
     Active Substance: DACTINOMYCIN
     Indication: Rhabdomyosarcoma
     Dosage: 2 MG, TOTAL
     Route: 042
     Dates: start: 20240313, end: 20240313
  9. MESNA [Suspect]
     Active Substance: MESNA
     Indication: Chemotherapy side effect prophylaxis
     Dosage: 5800 MG, QD
     Route: 042
     Dates: start: 20240313, end: 20240314
  10. POLYETHYLENE GLYCOL 4000 [Concomitant]
     Active Substance: POLYETHYLENE GLYCOL 4000
     Route: 065

REACTIONS (1)
  - Pancreatitis acute [Recovered/Resolved]

NARRATIVE: CASE EVENT DATE: 20240323
